FAERS Safety Report 11871151 (Version 1)
Quarter: 2015Q4

REPORT INFORMATION
  Report Type: Spontaneous
  Country: FR (occurrence: FR)
  Receive Date: 20151228
  Receipt Date: 20151228
  Transmission Date: 20160305
  Serious: Yes (Hospitalization)
  Sender: FDA-Public Use
  Company Number: FR-PFIZER INC-2015454629

PATIENT
  Age: 20 Month
  Sex: Female
  Weight: 11 kg

DRUGS (2)
  1. DOLIPRANE [Concomitant]
     Active Substance: ACETAMINOPHEN
     Indication: RHINITIS
     Dosage: UNK
     Route: 048
     Dates: start: 20151112, end: 20151114
  2. ADVILMED [Suspect]
     Active Substance: IBUPROFEN
     Indication: RHINITIS
     Dosage: UNK, SINGLE
     Route: 048
     Dates: start: 20151113, end: 20151113

REACTIONS (2)
  - Ulcer [Recovering/Resolving]
  - Gastrointestinal haemorrhage [Recovered/Resolved]

NARRATIVE: CASE EVENT DATE: 20151114
